FAERS Safety Report 5468010-3 (Version None)
Quarter: 2007Q3

REPORT INFORMATION
  Report Type: 
  Country: None (occurrence: None)
  Receive Date: 20070925
  Receipt Date: 20070925
  Transmission Date: 20080115
  Serious: No
  Sender: FDA-Public Use
  Company Number: None

PATIENT
  Sex: Male
  Weight: 90.7 kg

DRUGS (2)
  1. HALOPERIDOL [Suspect]
     Indication: SCHIZOPHRENIA
     Dosage: 5MG BID PO
     Route: 048
     Dates: start: 20070713, end: 20070715
  2. PAROXETINE [Suspect]
     Indication: DEPRESSION
     Dosage: 20MG QHS PO
     Route: 048

REACTIONS (9)
  - AKATHISIA [None]
  - DRUG INTERACTION [None]
  - DYSTONIA [None]
  - EXTRAPYRAMIDAL DISORDER [None]
  - FACIAL PALSY [None]
  - MENTAL DISORDER [None]
  - MUSCULOSKELETAL STIFFNESS [None]
  - SPEECH DISORDER [None]
  - TONGUE DISORDER [None]
